FAERS Safety Report 22012318 (Version 1)
Quarter: 2023Q1

REPORT INFORMATION
  Report Type: Spontaneous
  Country: US (occurrence: None)
  Receive Date: 20230220
  Receipt Date: 20230220
  Transmission Date: 20230417
  Serious: No
  Sender: FDA-Public Use
  Company Number: 2023A027108

PATIENT

DRUGS (1)
  1. KOSELUGO [Suspect]
     Active Substance: SELUMETINIB
     Dosage: DOSE UNKNOWN
     Route: 048

REACTIONS (2)
  - Hair texture abnormal [Unknown]
  - Hair colour changes [Unknown]
